FAERS Safety Report 16888702 (Version 1)
Quarter: 2019Q4

REPORT INFORMATION
  Report Type: Spontaneous
  Country: DE (occurrence: DE)
  Receive Date: 20191007
  Receipt Date: 20191007
  Transmission Date: 20200122
  Serious: No
  Sender: FDA-Public Use
  Company Number: DE-HORMOSAN PHARMA GMBH-2019-04856

PATIENT
  Sex: Female

DRUGS (1)
  1. OXYCODONE HCL 2 X TAGLICH HORMOSAN 40 MG RETARDTABLETTEN [Suspect]
     Active Substance: OXYCODONE HYDROCHLORIDE
     Indication: PAIN
     Dosage: 20 MILLIGRAM, TID (HALF TABLET)
     Route: 048
     Dates: start: 201905

REACTIONS (1)
  - Pain [Unknown]
